FAERS Safety Report 22984800 (Version 3)
Quarter: 2023Q4

REPORT INFORMATION
  Report Type: Report from Study
  Country: CA (occurrence: CA)
  Receive Date: 20230926
  Receipt Date: 20231018
  Transmission Date: 20240110
  Serious: Yes (Hospitalization)
  Sender: FDA-Public Use
  Company Number: CA-JNJFOC-20230954299

PATIENT
  Age: 11 Year
  Sex: Male
  Weight: 21 kg

DRUGS (2)
  1. REMICADE [Suspect]
     Active Substance: INFLIXIMAB
     Indication: Crohn^s disease
     Route: 041
     Dates: start: 20180209
  2. REMICADE [Suspect]
     Active Substance: INFLIXIMAB
     Dosage: REQUESTED FOR STAT DOSE OF 400MG THEN DOSE AT EVERY 4 WEEK
     Route: 041

REACTIONS (2)
  - Crohn^s disease [Unknown]
  - Drug level decreased [Unknown]
